FAERS Safety Report 10972634 (Version 3)
Quarter: 2020Q3

REPORT INFORMATION
  Report Type: Spontaneous
  Country: US (occurrence: US)
  Receive Date: 20150331
  Receipt Date: 20200706
  Transmission Date: 20201102
  Serious: No
  Sender: FDA-Public Use
  Company Number: US-JNJFOC-20140519651

PATIENT
  Age: 48 Year
  Sex: Male
  Weight: 99.43 kg

DRUGS (4)
  1. ZOLOFT [Concomitant]
     Active Substance: SERTRALINE HYDROCHLORIDE
     Indication: ANTIDEPRESSANT THERAPY
     Route: 048
  2. RISPERDAL [Suspect]
     Active Substance: RISPERIDONE
     Indication: SCHIZOPHRENIA
     Dosage: RISPERDAL?P4MG TABLET (TAKE ONE TABLET BY MOUTH TWICE DAILY) (STRENGTH 1 MG, 2MG, 3MG, 4 MG)
     Route: 048
     Dates: start: 2004, end: 2013
  3. LITHIUM CARBONATE. [Concomitant]
     Active Substance: LITHIUM CARBONATE
     Indication: PSYCHOTIC DISORDER
     Route: 048
  4. RISPERDAL [Suspect]
     Active Substance: RISPERIDONE
     Indication: BIPOLAR DISORDER

REACTIONS (2)
  - Gynaecomastia [Not Recovered/Not Resolved]
  - Blood prolactin increased [Unknown]

NARRATIVE: CASE EVENT DATE: 20140805
